FAERS Safety Report 7328656-4 (Version None)
Quarter: 2011Q1

REPORT INFORMATION
  Report Type: 
  Country: None (occurrence: None)
  Receive Date: 20110225
  Receipt Date: 20110225
  Transmission Date: 20110831
  Serious: Yes (Hospitalization)
  Sender: FDA-Public Use
  Company Number: None

PATIENT
  Age: 76 Year
  Sex: Female
  Weight: 70.3075 kg

DRUGS (1)
  1. FOSAMAX [Suspect]

REACTIONS (2)
  - INCORRECT DRUG ADMINISTRATION DURATION [None]
  - FEMUR FRACTURE [None]
